FAERS Safety Report 15795164 (Version 1)
Quarter: 2019Q1

REPORT INFORMATION
  Report Type: Spontaneous
  Country: US (occurrence: US)
  Receive Date: 20190107
  Receipt Date: 20190107
  Transmission Date: 20190417
  Serious: Yes (Other)
  Sender: FDA-Public Use
  Company Number: None

PATIENT
  Age: 41 Year
  Sex: Female
  Weight: 130.5 kg

DRUGS (17)
  1. COGENTIN [Concomitant]
     Active Substance: BENZTROPINE MESYLATE
  2. SINGULAIR [Concomitant]
     Active Substance: MONTELUKAST SODIUM
  3. STELAZINE [Concomitant]
     Active Substance: TRIFLUOPERAZINE HYDROCHLORIDE
  4. PROAIR INHALER [Concomitant]
     Active Substance: ALBUTEROL SULFATE
  5. OMEPRAZOLE. [Concomitant]
     Active Substance: OMEPRAZOLE
  6. BENAZEPRIL [Concomitant]
     Active Substance: BENAZEPRIL HYDROCHLORIDE
  7. PHENTERMINE. [Concomitant]
     Active Substance: PHENTERMINE
  8. CLOBETASOL [Concomitant]
     Active Substance: CLOBETASOL
  9. IRON [Concomitant]
     Active Substance: IRON
  10. MULTI VITAMIN [Concomitant]
     Active Substance: VITAMINS
  11. EZETIMIBE 10 MG TABLET [Suspect]
     Active Substance: EZETIMIBE
     Indication: BLOOD CHOLESTEROL INCREASED
     Dosage: ?          QUANTITY:1 TABLET(S);?
     Route: 048
     Dates: start: 20181205, end: 20190106
  12. PROPIONATE [Concomitant]
  13. EZETIMIBE. [Concomitant]
     Active Substance: EZETIMIBE
  14. MELATONIN [Concomitant]
     Active Substance: MELATONIN
  15. METFORMIN [Concomitant]
     Active Substance: METFORMIN HYDROCHLORIDE
  16. 5-HTP [Concomitant]
     Active Substance: OXITRIPTAN
  17. ACETAMINOPHEN. [Concomitant]
     Active Substance: ACETAMINOPHEN

REACTIONS (5)
  - Hyperacusis [None]
  - Migraine [None]
  - Headache [None]
  - Aura [None]
  - Photophobia [None]

NARRATIVE: CASE EVENT DATE: 20181206
